FAERS Safety Report 5485190-4 (Version None)
Quarter: 2007Q4

REPORT INFORMATION
  Report Type: 
  Country: None (occurrence: None)
  Receive Date: 20071010
  Receipt Date: 20071010
  Transmission Date: 20080405
  Serious: Yes (Congenital Anomaly)
  Sender: FDA-Public Use
  Company Number: None

PATIENT
  Sex: Female
  Weight: 6.804 kg

DRUGS (2)
  1. LEUPROLIDE ACETATE [Suspect]
     Indication: ENDOMETRIOSIS
     Dosage: 2 2
     Dates: start: 20060702, end: 20060702
  2. LEUPROLIDE ACETATE [Suspect]
     Indication: ENDOMETRIOSIS
     Dosage: 2 2
     Dates: start: 20060802, end: 20060802

REACTIONS (2)
  - BRAIN DAMAGE [None]
  - DRUG EXPOSURE DURING PREGNANCY [None]
